FAERS Safety Report 8022220-X (Version None)
Quarter: 2012Q1

REPORT INFORMATION
  Report Type: 
  Country: None (occurrence: None)
  Receive Date: 20120104
  Receipt Date: 20111228
  Transmission Date: 20120608
  Serious: Yes (Other)
  Sender: FDA-Public Use
  Company Number: CA-JNJFOC-20111212853

PATIENT
  Sex: Female

DRUGS (1)
  1. REMICADE [Suspect]
     Indication: CROHN'S DISEASE
     Route: 042
     Dates: start: 20110701, end: 20111001

REACTIONS (4)
  - PARAESTHESIA [None]
  - ADVERSE DRUG REACTION [None]
  - BURNING SENSATION [None]
  - OEDEMA PERIPHERAL [None]
